FAERS Safety Report 8390485-0 (Version None)
Quarter: 2012Q2

REPORT INFORMATION
  Report Type: 
  Country: None (occurrence: None)
  Receive Date: 20120529
  Receipt Date: 20120517
  Transmission Date: 20120825
  Serious: Yes (Other)
  Sender: FDA-Public Use
  Company Number: CA-JNJFOC-20120515499

PATIENT
  Sex: Male
  Weight: 66.4 kg

DRUGS (2)
  1. REMICADE [Suspect]
     Indication: CROHN'S DISEASE
     Route: 042
     Dates: start: 20021217
  2. IMURAN [Concomitant]
     Route: 065

REACTIONS (2)
  - CELLULITIS [None]
  - JOINT INJURY [None]
